FAERS Safety Report 24625058 (Version 1)
Quarter: 2024Q4

REPORT INFORMATION
  Report Type: Spontaneous
  Country: JP (occurrence: JP)
  Receive Date: 20241115
  Receipt Date: 20241115
  Transmission Date: 20250115
  Serious: Yes (Death, Other)
  Sender: ALEXION PHARMACEUTICALS
  Company Number: JP-ASTRAZENECA-240120796_011620_P_1

PATIENT

DRUGS (4)
  1. LYNPARZA [Suspect]
     Active Substance: OLAPARIB
     Indication: Hormone-refractory prostate cancer
     Dosage: 150 UNK
  2. LYNPARZA [Suspect]
     Active Substance: OLAPARIB
     Dosage: 150 UNK
  3. LYNPARZA [Suspect]
     Active Substance: OLAPARIB
     Dosage: 150 UNK
  4. LYNPARZA [Suspect]
     Active Substance: OLAPARIB
     Dosage: 150 UNK

REACTIONS (1)
  - Pulmonary fibrosis [Fatal]
